FAERS Safety Report 4789723-2 (Version None)
Quarter: 2005Q4

REPORT INFORMATION
  Report Type: 
  Country: None (occurrence: None)
  Receive Date: 20051006
  Receipt Date: 20040721
  Transmission Date: 20060501
  Serious: Yes (Hospitalization)
  Sender: FDA-Public Use
  Company Number: US-BOEHRINGER INGELHEIM PHARMACEUTICALS, INC.-2004-BP-05944BP

PATIENT
  Sex: Female
  Weight: 58.1 kg

DRUGS (3)
  1. TIPRANAVIR / RITONAVIR CAPSULES [Suspect]
     Indication: HIV INFECTION
     Dosage: TPV/R 1000/400MG
     Route: 048
     Dates: start: 20040616, end: 20040813
  2. COMBIVIR [Suspect]
     Indication: HIV INFECTION
     Route: 048
     Dates: start: 20040616, end: 20040813
  3. TENOFOVIR [Concomitant]
     Indication: HIV INFECTION
     Route: 048
     Dates: start: 20040616, end: 20040813

REACTIONS (7)
  - ANAEMIA [None]
  - CYTOMEGALOVIRUS CHORIORETINITIS [None]
  - LEUKOPENIA [None]
  - PRURITUS GENERALISED [None]
  - RENAL IMPAIRMENT [None]
  - STAPHYLOCOCCAL ABSCESS [None]
  - STAPHYLOCOCCAL BACTERAEMIA [None]
